FAERS Safety Report 9453090 (Version 1)
Quarter: 2013Q3

REPORT INFORMATION
  Report Type: Spontaneous
  Country: JP (occurrence: JP)
  Receive Date: 20130812
  Receipt Date: 20130812
  Transmission Date: 20140515
  Serious: Yes (Other)
  Sender: FDA-Public Use
  Company Number: JP-SANOFI-AVENTIS-2013SA079333

PATIENT
  Age: 79 Year
  Sex: Male
  Weight: 49 kg

DRUGS (9)
  1. CALCIUM LEVOFOLINATE [Suspect]
     Indication: COLON CANCER
     Route: 041
     Dates: start: 201012
  2. CALCIUM LEVOFOLINATE [Suspect]
     Indication: COLON CANCER
     Dosage: DOSE: 1600 MG/M2/D-2 GIVEN AS CONTINOUS INFUSION
     Route: 065
  3. ELPLAT [Suspect]
     Indication: COLON CANCER
     Dosage: TOTAL 3 CYCLES
     Route: 041
     Dates: start: 2009
  4. CAMPTO [Suspect]
     Indication: COLON CANCER
     Route: 041
     Dates: start: 201012
  5. XELODA [Concomitant]
     Dates: start: 2009
  6. AVASTIN [Concomitant]
     Dates: start: 2009
  7. 5-FU [Concomitant]
     Dosage: BOLUS
     Dates: start: 201012
  8. 5-FU [Concomitant]
     Dosage: CONTINUOUS INFUSION ON DAY1-2
     Dates: start: 201012
  9. ERBITUX [Concomitant]
     Dates: start: 201012

REACTIONS (3)
  - Hyperammonaemia [Unknown]
  - Neuropathy peripheral [Unknown]
  - Gastric ulcer haemorrhage [Unknown]
